FAERS Safety Report 9112165 (Version 1)
Quarter: 2013Q1

REPORT INFORMATION
  Report Type: Spontaneous
  Country: US (occurrence: US)
  Receive Date: 20130219
  Receipt Date: 20130219
  Transmission Date: 20140127
  Serious: No
  Sender: FDA-Public Use
  Company Number: US-BRISTOL-MYERS SQUIBB COMPANY-17055708

PATIENT
  Age: 60 Year
  Sex: Female
  Weight: 94.33 kg

DRUGS (7)
  1. ABATACEPT SUBQ INJECTION 125MG/ML [Suspect]
     Indication: RHEUMATOID ARTHRITIS
     Dosage: ORENCIA PRE-FILLED SYRINGE,LAST INJ:10OCT12
     Route: 058
     Dates: start: 20120803
  2. HYDROCODONE [Concomitant]
  3. LEVOTHYROXINE [Concomitant]
  4. VERAPAMIL [Concomitant]
  5. FOLIC ACID [Concomitant]
  6. VENLAFAXINE HYDROCHLORIDE [Concomitant]
  7. BABY ASPIRIN [Concomitant]

REACTIONS (1)
  - Drug dose omission [Unknown]
